FAERS Safety Report 15692744 (Version 1)
Quarter: 2018Q4

REPORT INFORMATION
  Report Type: Other
  Country: US (occurrence: US)
  Receive Date: 20181206
  Receipt Date: 20181206
  Transmission Date: 20190205
  Serious: Yes (Other)
  Sender: FDA-Public Use
  Company Number: US-APOTEX-2018AP025916

PATIENT
  Age: 33 Year
  Sex: Female

DRUGS (4)
  1. TENOFOVIR [Suspect]
     Active Substance: TENOFOVIR
     Indication: HIV INFECTION
     Dosage: UNK, UNK
     Route: 048
  2. EMTRICITABIN TENOFOVIR [Suspect]
     Active Substance: EMTRICITABINE\TENOFOVIR
     Indication: PRODUCT USED FOR UNKNOWN INDICATION
     Dosage: UNK
     Route: 048
  3. TENOFOVIR [Suspect]
     Active Substance: TENOFOVIR
     Indication: HEPATITIS B
  4. RALTEGRAVIR. [Suspect]
     Active Substance: RALTEGRAVIR
     Indication: PRODUCT USED FOR UNKNOWN INDICATION
     Dosage: UNK , UNK
     Route: 048

REACTIONS (1)
  - Exposure during pregnancy [Unknown]
